FAERS Safety Report 8217213-3 (Version None)
Quarter: 2012Q1

REPORT INFORMATION
  Report Type: 
  Country: None (occurrence: None)
  Receive Date: 20120319
  Receipt Date: 20120316
  Transmission Date: 20120608
  Serious: Yes (Death)
  Sender: FDA-Public Use
  Company Number: US-PFIZER INC-2012070083

PATIENT

DRUGS (4)
  1. CHANTIX [Suspect]
     Indication: SMOKING CESSATION THERAPY
     Dosage: UNK
     Dates: start: 20120201
  2. ZYBAN [Concomitant]
     Dosage: UNK
  3. NICOTINE [Concomitant]
     Dosage: UNK
  4. WELLBUTRIN [Concomitant]
     Dosage: UNK

REACTIONS (1)
  - COMPLETED SUICIDE [None]
